FAERS Safety Report 8779317 (Version 1)
Quarter: 2012Q4

REPORT INFORMATION
  Report Type: 
  Country: US (occurrence: US)
  Receive Date: 20120911
  Receipt Date: 20120911
  Transmission Date: 20130627
  Serious: Yes (Death)
  Sender: FDA-Public Use
  Company Number: US-ELI_LILLY_AND_COMPANY-US201209002029

PATIENT
  Sex: Female

DRUGS (1)
  1. ADCIRCA [Suspect]

REACTIONS (1)
  - Cerebral haemorrhage [Fatal]
